FAERS Safety Report 6072319-2 (Version None)
Quarter: 2009Q1

REPORT INFORMATION
  Report Type: 
  Country: None (occurrence: None)
  Receive Date: 20090210
  Receipt Date: 20090205
  Transmission Date: 20090719
  Serious: Yes (Other)
  Sender: FDA-Public Use
  Company Number: CA-WYE-G03077609

PATIENT

DRUGS (2)
  1. SIROLIMUS [Suspect]
  2. SUTENT [Concomitant]

REACTIONS (1)
  - RENAL CELL CARCINOMA [None]
